FAERS Safety Report 19495344 (Version 7)
Quarter: 2022Q1

REPORT INFORMATION
  Report Type: Spontaneous
  Country: CA (occurrence: CA)
  Receive Date: 20210706
  Receipt Date: 20220211
  Transmission Date: 20220423
  Serious: Yes (Other)
  Sender: FDA-Public Use
  Company Number: CA-CELLTRION INC.-2021CA009036

PATIENT

DRUGS (11)
  1. INFLECTRA [Suspect]
     Active Substance: INFLIXIMAB-DYYB
     Indication: Colitis ulcerative
     Dosage: 1 DF, IN HOSPITAL AT WEEK 0
     Route: 042
     Dates: start: 20210510
  2. INFLECTRA [Suspect]
     Active Substance: INFLIXIMAB-DYYB
     Dosage: 800 MG AT 2, 6 WEEKS THEN EVERY 8 WEEKS
     Route: 042
     Dates: start: 20210601
  3. INFLECTRA [Suspect]
     Active Substance: INFLIXIMAB-DYYB
     Dosage: 800 MG AT 2, 6 WEEKS THEN EVERY 8 WEEKS
     Route: 042
     Dates: start: 20210623, end: 20210623
  4. INFLECTRA [Suspect]
     Active Substance: INFLIXIMAB-DYYB
     Dosage: 800 MG AT 2, 6 WEEKS THEN EVERY 8 WEEKS
     Route: 042
     Dates: start: 20210826
  5. INFLECTRA [Suspect]
     Active Substance: INFLIXIMAB-DYYB
     Dosage: 800 MG AT 2, 6 WEEKS THEN EVERY 8 WEEKS
     Route: 042
     Dates: start: 20211014
  6. INFLECTRA [Suspect]
     Active Substance: INFLIXIMAB-DYYB
     Dosage: 800 MG AT 2, 6 WEEKS THEN EVERY 8 WEEKS
     Route: 042
     Dates: start: 20211209
  7. INFLECTRA [Suspect]
     Active Substance: INFLIXIMAB-DYYB
     Dosage: 800 MG AT 2, 6 WEEKS THEN EVERY 8 WEEKS
     Route: 042
     Dates: start: 20220131
  8. METAMUCIL [Concomitant]
     Active Substance: PLANTAGO SEED
     Dosage: UNK
  9. PREDNISONE [Concomitant]
     Active Substance: PREDNISONE
     Dosage: UNK
  10. SYNTHROID [Concomitant]
     Active Substance: LEVOTHYROXINE SODIUM
     Dosage: UNK
  11. VANCOMYCIN [Concomitant]
     Active Substance: VANCOMYCIN
     Dosage: 1 DF

REACTIONS (13)
  - Nausea [Recovering/Resolving]
  - Haematochezia [Recovering/Resolving]
  - Condition aggravated [Not Recovered/Not Resolved]
  - Intentional product use issue [Unknown]
  - Off label use [Unknown]
  - Inappropriate schedule of product administration [Unknown]
  - Urticaria [Recovered/Resolved]
  - Acne [Not Recovered/Not Resolved]
  - Erythema [Unknown]
  - Abdominal pain [Recovering/Resolving]
  - Rash [Not Recovered/Not Resolved]
  - Blood pressure increased [Unknown]
  - Weight decreased [Unknown]

NARRATIVE: CASE EVENT DATE: 20210101
